FAERS Safety Report 9117920 (Version 2)
Quarter: 2013Q2

REPORT INFORMATION
  Report Type: Spontaneous
  Country: FR (occurrence: FR)
  Receive Date: 20130208
  Receipt Date: 20130410
  Transmission Date: 20140414
  Serious: No
  Sender: FDA-Public Use
  Company Number: FR-ELI_LILLY_AND_COMPANY-FR201301009927

PATIENT
  Age: 87 Year
  Sex: Female
  Weight: 54 kg

DRUGS (3)
  1. FORSTEO [Suspect]
     Indication: OSTEOPOROSIS
     Dosage: 20 UG, QD
     Route: 058
     Dates: start: 20120101
  2. CACIT                                   /FRA/ [Concomitant]
     Indication: OSTEOPOROSIS
     Dosage: 1 DF, QD
     Dates: start: 201202
  3. UVEDOSE [Concomitant]
     Indication: OSTEOPOROSIS
     Dosage: UNK, MONTHLY (1/M)
     Dates: start: 201202

REACTIONS (2)
  - Hand fracture [Recovered/Resolved]
  - Fall [Recovered/Resolved]
